FAERS Safety Report 21824701 (Version 1)
Quarter: 2023Q1

REPORT INFORMATION
  Report Type: Spontaneous
  Country: CN (occurrence: CN)
  Receive Date: 20230105
  Receipt Date: 20230105
  Transmission Date: 20230418
  Serious: Yes (Life-Threatening, Hospitalization)
  Sender: FDA-Public Use
  Company Number: CN-ELI_LILLY_AND_COMPANY-CN202301000856

PATIENT
  Age: 60 Year
  Sex: Female
  Weight: 68 kg

DRUGS (4)
  1. GEMZAR [Suspect]
     Active Substance: GEMCITABINE HYDROCHLORIDE
     Indication: Lung neoplasm malignant
     Dosage: 1200 MG, WEEKLY (1/W) (ONCE A WEEK)
     Route: 041
     Dates: start: 20221111, end: 20221111
  2. TAXOTERE [Suspect]
     Active Substance: DOCETAXEL
     Indication: Lung neoplasm malignant
     Dosage: 60 MG, OTHER (EVERY THREE WEEKS)
     Route: 041
     Dates: start: 20221111, end: 20221111
  3. SODIUM CHLORIDE [Concomitant]
     Active Substance: SODIUM CHLORIDE
     Indication: Medication dilution
     Dosage: 250 ML, OTHER (EVERY 21 DAYS)
     Route: 041
     Dates: start: 20221111, end: 20221111
  4. SODIUM CHLORIDE [Concomitant]
     Active Substance: SODIUM CHLORIDE
     Dosage: 100 ML, OTHER (ONCE IN 7 DAYS)
     Route: 041
     Dates: start: 20221111, end: 20221111

REACTIONS (1)
  - Myelosuppression [Unknown]

NARRATIVE: CASE EVENT DATE: 20221114
